FAERS Safety Report 21248117 (Version 1)
Quarter: 2022Q3

REPORT INFORMATION
  Report Type: Report from Study
  Country: NL (occurrence: NL)
  Receive Date: 20220824
  Receipt Date: 20220824
  Transmission Date: 20221027
  Serious: Yes (Other)
  Sender: FDA-Public Use
  Company Number: NL-MYE-2022M1087979AA

PATIENT
  Age: 54 Year
  Sex: Male

DRUGS (2)
  1. METFORMIN [Suspect]
     Active Substance: METFORMIN HYDROCHLORIDE
     Indication: Chondrosarcoma
     Dosage: 500 MILLIGRAM, BID
     Route: 048
  2. CHLOROQUINE [Suspect]
     Active Substance: CHLOROQUINE
     Indication: Chondrosarcoma
     Dosage: 200 MILLIGRAM, QD
     Route: 048

REACTIONS (3)
  - Therapy non-responder [Unknown]
  - Neoplasm progression [Unknown]
  - Off label use [Unknown]
